FAERS Safety Report 19488880 (Version 1)
Quarter: 2021Q3

REPORT INFORMATION
  Report Type: Spontaneous
  Country: US (occurrence: US)
  Receive Date: 20210702
  Receipt Date: 20210702
  Transmission Date: 20211014
  Serious: Yes (Other)
  Sender: FDA-Public Use
  Company Number: US-BAUSCH-BL-2021-022141

PATIENT
  Sex: Female

DRUGS (13)
  1. PEPCID [Suspect]
     Active Substance: FAMOTIDINE
     Indication: DYSPNOEA
  2. PEPCID [Suspect]
     Active Substance: FAMOTIDINE
     Indication: BREATH SOUNDS ABNORMAL
  3. ALBUTEROL. [Suspect]
     Active Substance: ALBUTEROL
     Indication: DYSPNOEA
  4. PEPCID [Suspect]
     Active Substance: FAMOTIDINE
     Indication: THROAT CLEARING
  5. PEPCID [Suspect]
     Active Substance: FAMOTIDINE
     Indication: WHEEZING
  6. COVID?19 VACCINE NOS. [Suspect]
     Active Substance: COVID-19 VACCINE NOS
     Indication: COVID-19 PROPHYLAXIS
     Route: 065
     Dates: start: 20210317
  7. PEPCID [Suspect]
     Active Substance: FAMOTIDINE
     Indication: PRODUCTIVE COUGH
  8. ALBUTEROL. [Suspect]
     Active Substance: ALBUTEROL
     Indication: CHEST DISCOMFORT
     Dosage: 2 PUFFS
     Route: 055
     Dates: start: 20210317
  9. ALBUTEROL. [Suspect]
     Active Substance: ALBUTEROL
     Indication: THROAT CLEARING
  10. PEPCID [Suspect]
     Active Substance: FAMOTIDINE
     Indication: CHEST DISCOMFORT
     Route: 065
     Dates: start: 20210317
  11. ALBUTEROL. [Suspect]
     Active Substance: ALBUTEROL
     Indication: PRODUCTIVE COUGH
  12. ALBUTEROL. [Suspect]
     Active Substance: ALBUTEROL
     Indication: BREATH SOUNDS ABNORMAL
  13. ALBUTEROL. [Suspect]
     Active Substance: ALBUTEROL
     Indication: WHEEZING

REACTIONS (1)
  - Therapy non-responder [Unknown]

NARRATIVE: CASE EVENT DATE: 20210317
